FAERS Safety Report 25773239 (Version 1)
Quarter: 2025Q3

REPORT INFORMATION
  Report Type: Spontaneous
  Country: US (occurrence: None)
  Receive Date: 20250906
  Receipt Date: 20250906
  Transmission Date: 20251021
  Serious: Yes (Other)
  Sender: FDA-CTU
  Company Number: None

PATIENT
  Age: 54 Year
  Sex: Female
  Weight: 74.25 kg

DRUGS (14)
  1. GABAPENTIN [Suspect]
     Active Substance: GABAPENTIN
     Indication: Neuropathy peripheral
     Dosage: OTHER QUANTITY : 1 TABLET(S);?FREQUENCY : AT BEDTIME;?
     Route: 048
     Dates: start: 20230120, end: 20250120
  2. DEVICE [Concomitant]
     Active Substance: DEVICE
  3. DEVICE [Concomitant]
     Active Substance: DEVICE
  4. AMITRIPTYLINE [Concomitant]
     Active Substance: AMITRIPTYLINE
  5. SPIRONOLACTONE [Concomitant]
     Active Substance: SPIRONOLACTONE
  6. SYNTHROID [Concomitant]
     Active Substance: LEVOTHYROXINE SODIUM
  7. VALACYCLOVIR [Concomitant]
     Active Substance: VALACYCLOVIR HYDROCHLORIDE
  8. ZYRTEC [Concomitant]
     Active Substance: CETIRIZINE HYDROCHLORIDE
  9. BACLOFEN [Concomitant]
     Active Substance: BACLOFEN
  10. VITAMIN D3 [Concomitant]
     Active Substance: CHOLECALCIFEROL
  11. VITAMIN B12 [Concomitant]
     Active Substance: CYANOCOBALAMIN
  12. MAGNESIUM GLYCINATE [Concomitant]
     Active Substance: MAGNESIUM GLYCINATE
  13. ZINC [Concomitant]
     Active Substance: ZINC
  14. POTASSIUM [Concomitant]
     Active Substance: POTASSIUM

REACTIONS (12)
  - Hypotension [None]
  - Heart rate decreased [None]
  - Drug withdrawal syndrome [None]
  - Anxiety [None]
  - Anxiety [None]
  - Insomnia [None]
  - Hyperhidrosis [None]
  - Chills [None]
  - Nausea [None]
  - Weight decreased [None]
  - Drug dependence [None]
  - Product use complaint [None]

NARRATIVE: CASE EVENT DATE: 20240115
